FAERS Safety Report 6310656-4 (Version None)
Quarter: 2009Q3

REPORT INFORMATION
  Report Type: 
  Country: None (occurrence: None)
  Receive Date: 20090811
  Receipt Date: 20090804
  Transmission Date: 20100115
  Serious: Yes (Death, Other)
  Sender: FDA-Public Use
  Company Number: 2009SP013062

PATIENT
  Age: 69 Year
  Sex: Female

DRUGS (7)
  1. TEMODAL [Suspect]
     Indication: GLIOMA
     Dosage: 130 MG; PO
     Route: 048
     Dates: start: 20080419, end: 20090123
  2. TEMODAL [Suspect]
  3. TEMODAL [Suspect]
  4. SIMVASTATIN [Concomitant]
  5. VENLAFAXINE HYDROCHLORIDE [Concomitant]
  6. KEPPRA [Concomitant]
  7. OMEPRAZOL [Concomitant]

REACTIONS (5)
  - B-CELL LYMPHOMA [None]
  - BRONCHITIS [None]
  - CEREBROVASCULAR ACCIDENT [None]
  - EPSTEIN-BARR VIRUS TEST POSITIVE [None]
  - MYOCARDIAL INFARCTION [None]
